FAERS Safety Report 14784925 (Version 1)
Quarter: 2018Q2

REPORT INFORMATION
  Report Type: Spontaneous
  Country: AU (occurrence: AU)
  Receive Date: 20180420
  Receipt Date: 20180420
  Transmission Date: 20180711
  Serious: Yes (Life-Threatening, Hospitalization)
  Sender: FDA-Public Use
  Company Number: AU-ASTRAZENECA-2018SE49609

PATIENT
  Age: 23116 Day
  Sex: Male

DRUGS (4)
  1. PERINDOPRIL [Concomitant]
     Active Substance: PERINDOPRIL
  2. FORXIGA [Suspect]
     Active Substance: DAPAGLIFLOZIN
     Dosage: 10.0MG UNKNOWN
     Route: 048
     Dates: start: 20150727, end: 20150826
  3. ATORVASTATIN [Concomitant]
     Active Substance: ATORVASTATIN
  4. METFORMIN HYDROCHLORIDE. [Concomitant]
     Active Substance: METFORMIN HYDROCHLORIDE

REACTIONS (3)
  - Hyperglycaemic hyperosmolar nonketotic syndrome [Unknown]
  - Acute kidney injury [Unknown]
  - Ketoacidosis [Unknown]

NARRATIVE: CASE EVENT DATE: 20150825
